FAERS Safety Report 9384406 (Version 2)
Quarter: 2014Q1

REPORT INFORMATION
  Report Type: Report from Study
  Country: US (occurrence: US)
  Receive Date: 20130705
  Receipt Date: 20140326
  Transmission Date: 20141002
  Serious: Yes (Other)
  Sender: FDA-Public Use
  Company Number: PHEH2013US004076

PATIENT
  Age: 66 Year
  Sex: Female
  Weight: 61.3 kg

DRUGS (4)
  1. GLEEVEC [Suspect]
     Indication: GASTROINTESTINAL STROMAL TUMOUR
     Dosage: 400 MG, QD
     Route: 048
  2. GLEEVEC [Suspect]
     Dosage: 400 MG, QD
     Route: 048
     Dates: start: 201212
  3. GLEEVEC [Suspect]
     Dosage: 1 DF (400 MG), DAILY
     Route: 048
     Dates: start: 201302
  4. GLEEVEC [Suspect]
     Dosage: 300 MG, UNK

REACTIONS (8)
  - Gastrointestinal stromal tumour [Recovering/Resolving]
  - Malignant neoplasm progression [Recovering/Resolving]
  - Defaecation urgency [Recovered/Resolved]
  - Skin disorder [Recovered/Resolved]
  - Frequent bowel movements [Recovered/Resolved]
  - Lacrimation increased [Recovered/Resolved]
  - Rash [Recovered/Resolved]
  - Arthropod bite [Recovered/Resolved]
